FAERS Safety Report 9982832 (Version 1)
Quarter: 2014Q1

REPORT INFORMATION
  Report Type: Report from Study
  Country: US (occurrence: US)
  Receive Date: 20140307
  Receipt Date: 20140307
  Transmission Date: 20141002
  Serious: No
  Sender: FDA-Public Use
  Company Number: US-ABBVIE-13P-163-1176668-00

PATIENT
  Age: 66 Year
  Sex: Male
  Weight: 104.42 kg

DRUGS (9)
  1. HUMIRA [Suspect]
     Indication: RHEUMATOID ARTHRITIS
     Route: 058
     Dates: start: 2009, end: 201303
  2. REMICADE [Suspect]
     Indication: RHEUMATOID ARTHRITIS
     Route: 042
     Dates: start: 201304
  3. DIGOXIN [Concomitant]
     Indication: ATRIAL FIBRILLATION
  4. LOSARTAN [Concomitant]
     Indication: HYPERTENSION
  5. WARFARIN [Concomitant]
     Indication: ATRIAL FIBRILLATION
  6. METOPROLOL [Concomitant]
     Indication: ATRIAL FIBRILLATION
  7. DILTIAZEM [Concomitant]
     Indication: HYPERTENSION
  8. PRAVASTATIN [Concomitant]
     Indication: BLOOD CHOLESTEROL INCREASED
  9. METHOTREXATE [Concomitant]
     Indication: RHEUMATOID ARTHRITIS

REACTIONS (7)
  - Latent tuberculosis [Unknown]
  - Nausea [Recovered/Resolved]
  - Fatigue [Recovered/Resolved]
  - Vomiting [Recovered/Resolved]
  - Diarrhoea [Recovered/Resolved]
  - Vomiting [Recovered/Resolved]
  - Insomnia [Recovered/Resolved]
